FAERS Safety Report 24867258 (Version 1)
Quarter: 2025Q1

REPORT INFORMATION
  Report Type: Spontaneous
  Country: US (occurrence: US)
  Receive Date: 20250121
  Receipt Date: 20250121
  Transmission Date: 20250409
  Serious: Yes (Other)
  Sender: ALEXION PHARMACEUTICALS
  Company Number: US-AstraZeneca-CH-00788323A

PATIENT
  Age: 62 Year
  Weight: 92.517 kg

DRUGS (1)
  1. FARXIGA [Suspect]
     Active Substance: DAPAGLIFLOZIN PROPANEDIOL
     Indication: Cardiovascular disorder
     Dosage: 10 MILLIGRAM

REACTIONS (3)
  - Hallucination [Recovered/Resolved]
  - Depression [Recovered/Resolved]
  - Gastrointestinal motility disorder [Recovered/Resolved]
